FAERS Safety Report 4437385-6 (Version None)
Quarter: 2004Q3

REPORT INFORMATION
  Report Type: 
  Country: None (occurrence: None)
  Receive Date: 20040726
  Receipt Date: 20040414
  Transmission Date: 20050211
  Serious: No
  Sender: FDA-Public Use
  Company Number: USA040363520

PATIENT
  Age: 74 Year
  Sex: Female

DRUGS (1)
  1. FORTEO [Suspect]
     Indication: OSTEOPATHIC TREATMENT
     Dates: start: 20040326, end: 20040329

REACTIONS (2)
  - BLOOD PRESSURE INCREASED [None]
  - CARDIAC FLUTTER [None]
